FAERS Safety Report 5907867-6 (Version None)
Quarter: 2008Q4

REPORT INFORMATION
  Report Type: 
  Country: None (occurrence: None)
  Receive Date: 20081003
  Receipt Date: 20080923
  Transmission Date: 20090506
  Serious: Yes (Other)
  Sender: FDA-Public Use
  Company Number: US-PFIZER INC-2008080378

PATIENT
  Sex: Female
  Weight: 81.6 kg

DRUGS (2)
  1. CHANTIX [Suspect]
     Indication: SMOKING CESSATION THERAPY
     Dates: start: 20070401, end: 20080629
  2. LISINOPRIL [Concomitant]

REACTIONS (6)
  - BLOOD CHOLESTEROL INCREASED [None]
  - DEHYDRATION [None]
  - MALAISE [None]
  - MENTAL DISORDER [None]
  - PANIC DISORDER [None]
  - THINKING ABNORMAL [None]
